FAERS Safety Report 17360215 (Version 1)
Quarter: 2020Q1

REPORT INFORMATION
  Report Type: Spontaneous
  Country: US (occurrence: US)
  Receive Date: 20200203
  Receipt Date: 20200203
  Transmission Date: 20200409
  Serious: No
  Sender: FDA-Public Use
  Company Number: US-GLAXOSMITHKLINE-US2020014099

PATIENT
  Age: 29 Year
  Sex: Female

DRUGS (2)
  1. ABREVA [Suspect]
     Active Substance: DOCOSANOL
     Dosage: UNK, (USED IT FOR 4 TIMES)
     Route: 065
  2. ABREVA [Suspect]
     Active Substance: DOCOSANOL
     Indication: ORAL HERPES
     Dosage: UNK (USED IT FOR 4 TIMES)
     Route: 065
     Dates: start: 20200123, end: 20200123

REACTIONS (5)
  - Lip swelling [Unknown]
  - Condition aggravated [Unknown]
  - Inappropriate schedule of product administration [Unknown]
  - Oral discomfort [Unknown]
  - Oral herpes [Unknown]

NARRATIVE: CASE EVENT DATE: 20200123
